FAERS Safety Report 15113086 (Version 1)
Quarter: 2018Q3

REPORT INFORMATION
  Report Type: Spontaneous
  Country: IT (occurrence: IT)
  Receive Date: 20180706
  Receipt Date: 20180706
  Transmission Date: 20181010
  Serious: Yes (Other)
  Sender: FDA-Public Use
  Company Number: IT-TEVA-2018-IT-921202

PATIENT
  Age: 87 Year
  Sex: Male

DRUGS (2)
  1. TRITTICO [Concomitant]
     Active Substance: TRAZODONE HYDROCHLORIDE
     Route: 065
  2. QUETIAPINE. [Suspect]
     Active Substance: QUETIAPINE
     Indication: DEMENTIA ALZHEIMER^S TYPE
     Dosage: 25 MILLIGRAM DAILY;
     Route: 048
     Dates: start: 20171206, end: 20171210

REACTIONS (4)
  - Feeling jittery [Recovering/Resolving]
  - Arrhythmia [Recovering/Resolving]
  - Confusional state [Recovering/Resolving]
  - Atrial fibrillation [Recovering/Resolving]

NARRATIVE: CASE EVENT DATE: 20171210
